FAERS Safety Report 22307601 (Version 2)
Quarter: 2023Q2

REPORT INFORMATION
  Report Type: Spontaneous
  Country: US (occurrence: US)
  Receive Date: 20230511
  Receipt Date: 20230627
  Transmission Date: 20230722
  Serious: Yes (Other)
  Sender: FDA-Public Use
  Company Number: US-002147023-NVSC2023US104473

PATIENT
  Age: 19 Year
  Sex: Female
  Weight: 89 kg

DRUGS (5)
  1. ILARIS [Suspect]
     Active Substance: CANAKINUMAB
     Indication: Yao syndrome
     Dosage: UNK
     Route: 058
     Dates: start: 202302
  2. ILARIS [Suspect]
     Active Substance: CANAKINUMAB
     Indication: Pyrexia
     Dosage: UNK
     Route: 058
     Dates: start: 202303
  3. ILARIS [Suspect]
     Active Substance: CANAKINUMAB
     Dosage: 150 MG, QMO, TILL PATIENT VISIT AUG 2023
     Route: 058
     Dates: start: 20230406
  4. CLOBETASOL [Concomitant]
     Active Substance: CLOBETASOL
     Indication: Product used for unknown indication
     Dosage: UNK
     Route: 065
  5. TACROLIMUS [Concomitant]
     Active Substance: TACROLIMUS
     Indication: Product used for unknown indication
     Dosage: UNK, PRN
     Route: 065

REACTIONS (9)
  - Skin infection [Recovered/Resolved]
  - Corynebacterium infection [Recovered/Resolved]
  - Erythema [Not Recovered/Not Resolved]
  - Beta haemolytic streptococcal infection [Recovered/Resolved]
  - Rash [Recovered/Resolved]
  - Pain [Recovered/Resolved]
  - Urticaria [Recovered/Resolved]
  - Dermatitis [Recovered/Resolved]
  - Product use in unapproved indication [Unknown]

NARRATIVE: CASE EVENT DATE: 20230417
